FAERS Safety Report 5140708-6 (Version None)
Quarter: 2006Q4

REPORT INFORMATION
  Report Type: 
  Country: None (occurrence: None)
  Receive Date: 20061025
  Receipt Date: 20061012
  Transmission Date: 20070319
  Serious: Yes (Other)
  Sender: FDA-Public Use
  Company Number: 2006128956

PATIENT
  Sex: Male

DRUGS (2)
  1. CARDURA XL [Suspect]
     Indication: BENIGN PROSTATIC HYPERPLASIA
     Dosage: (4 MG), ORAL
     Route: 048
  2. PROSCAR [Concomitant]

REACTIONS (2)
  - FEAR OF DISEASE [None]
  - HEPATIC STEATOSIS [None]
